FAERS Safety Report 8350198-8 (Version None)
Quarter: 2012Q2

REPORT INFORMATION
  Report Type: 
  Country: None (occurrence: None)
  Receive Date: 20120510
  Receipt Date: 20120503
  Transmission Date: 20120825
  Serious: Yes (Hospitalization, Other)
  Sender: FDA-Public Use
  Company Number: US-BAYER-2012-032757

PATIENT
  Age: 28 Year
  Sex: Female
  Weight: 65.306 kg

DRUGS (14)
  1. ZANAFLEX [Concomitant]
     Indication: FIBROMYALGIA
     Dosage: 4 MG, BID
     Route: 048
  2. ZANAFLEX [Concomitant]
     Indication: DEPRESSION
  3. CYMBALTA [Concomitant]
     Indication: FIBROMYALGIA
  4. MELOXICAM [Concomitant]
     Dosage: 15 MG, UNK
  5. YAZ [Suspect]
     Indication: CONTRACEPTION
     Dosage: UNK
     Dates: start: 20081201, end: 20100307
  6. DICLOFENAC SODIUM [Concomitant]
     Indication: FIBROMYALGIA
  7. ZYPREXA [Concomitant]
     Indication: DEPRESSION
  8. DIVALPROEX SODIUM [Concomitant]
     Dosage: 500 MG, UNK
  9. DILAUDID [Concomitant]
     Indication: FIBROMYALGIA
  10. YASMIN [Suspect]
     Indication: CONTRACEPTION
     Dosage: UNK
     Dates: start: 20080301, end: 20080601
  11. YASMIN [Suspect]
     Dosage: UNK
     Dates: start: 20081201, end: 20081201
  12. ZANAFLEX [Concomitant]
     Indication: MUSCLE SPASMS
  13. DROSPIRENONE AND ETHINYL ESTRADIOL [Suspect]
     Indication: CONTRACEPTION
     Dosage: UNK
     Dates: start: 20080701, end: 20081101
  14. LYRICA [Concomitant]
     Indication: MYALGIA

REACTIONS (5)
  - PAIN [None]
  - OEDEMA PERIPHERAL [None]
  - INJURY [None]
  - DEEP VEIN THROMBOSIS [None]
  - PAIN IN EXTREMITY [None]
